FAERS Safety Report 12424977 (Version 1)
Quarter: 2016Q2

REPORT INFORMATION
  Report Type: Spontaneous
  Country: US (occurrence: US)
  Receive Date: 20160601
  Receipt Date: 20160601
  Transmission Date: 20160815
  Serious: No
  Sender: FDA-Public Use
  Company Number: US-VANDA PHARMACEUTICALS, INC-2016ILOUS001538

PATIENT
  Age: 36 Year
  Sex: Male
  Weight: 73.94 kg

DRUGS (9)
  1. LATUDA [Concomitant]
     Active Substance: LURASIDONE HYDROCHLORIDE
     Indication: PRODUCT USED FOR UNKNOWN INDICATION
     Dosage: UNK
     Dates: start: 201312, end: 201401
  2. DEPAKOTE [Concomitant]
     Active Substance: DIVALPROEX SODIUM
     Indication: MOOD SWINGS
     Dosage: 250 MG PILL THREE TIMES DAILY AND 500 MG PILLS TWICE DAILY
     Dates: start: 201310, end: 201403
  3. FANAPT [Suspect]
     Active Substance: ILOPERIDONE
     Indication: PRODUCT USED FOR UNKNOWN INDICATION
     Dosage: UNK
     Dates: start: 201310, end: 201312
  4. ZIPRASIDONE HCL [Concomitant]
     Active Substance: ZIPRASIDONE HYDROCHLORIDE
     Indication: PRODUCT USED FOR UNKNOWN INDICATION
     Dosage: 80 MG CAPSULE AT NIGHT
     Dates: start: 201308, end: 2015
  5. GABAPENTIN. [Suspect]
     Active Substance: GABAPENTIN
     Indication: INSOMNIA
     Dosage: THREE PILLS AT NIGHT
     Dates: start: 201310, end: 201311
  6. DEPAKOTE [Concomitant]
     Active Substance: DIVALPROEX SODIUM
     Dosage: 500 MG PILLS TWICE DAILY
     Dates: start: 201310, end: 201403
  7. LOXAPINE. [Concomitant]
     Active Substance: LOXAPINE
     Indication: PRODUCT USED FOR UNKNOWN INDICATION
     Dosage: 350 MG, DAILY
     Dates: start: 201209
  8. TRILEPTAL [Concomitant]
     Active Substance: OXCARBAZEPINE
     Indication: MOOD SWINGS
     Dosage: 150 MG PILL TWICE DAILY
     Dates: start: 200607
  9. LOXAPINE. [Concomitant]
     Active Substance: LOXAPINE
     Dosage: 350 MG CAPSULE DAILY

REACTIONS (5)
  - Mania [Recovered/Resolved]
  - Mental impairment [Recovered/Resolved]
  - Increased appetite [Unknown]
  - Drug ineffective [None]
  - Aggression [Recovered/Resolved]

NARRATIVE: CASE EVENT DATE: 201310
